FAERS Safety Report 4400757-X (Version None)
Quarter: 2004Q3

REPORT INFORMATION
  Report Type: 
  Country: None (occurrence: None)
  Receive Date: 20040907
  Receipt Date: 20020206
  Transmission Date: 20050211
  Serious: No
  Sender: FDA-Public Use
  Company Number: US-BRISTOL-MYERS SQUIBB COMPANY-11708930

PATIENT
  Age: 73 Year
  Sex: Female
  Weight: 68 kg

DRUGS (9)
  1. COUMADIN [Suspect]
     Indication: ATRIAL FIBRILLATION
     Dosage: 5MG-6MG QD; 3.5MG DOSE/2.5MG:LOT#OUA13,EXP 11/06:DOSE ADJUSTED AS PER INR LEVELS
     Route: 048
     Dates: start: 20010709
  2. ACCUPRIL [Concomitant]
     Dates: start: 20010901
  3. MULTIVITAMIN [Concomitant]
     Dosage: TAKEN FOR ^YEARS^.
  4. TETRACYCLINE [Concomitant]
  5. DERMATOP [Concomitant]
     Route: 061
  6. CALCIUM [Concomitant]
  7. METROGEL [Concomitant]
  8. TEARS NATURALE [Concomitant]
  9. AMIODARONE HCL [Concomitant]

REACTIONS (3)
  - BLOOD CHOLESTEROL INCREASED [None]
  - INTERNATIONAL NORMALISED RATIO ABNORMAL [None]
  - SKIN DISCOLOURATION [None]
